FAERS Safety Report 13865678 (Version 2)
Quarter: 2017Q3

REPORT INFORMATION
  Report Type: Spontaneous
  Country: IT (occurrence: IT)
  Receive Date: 20170814
  Receipt Date: 20170831
  Transmission Date: 20171127
  Serious: Yes (Disabling)
  Sender: FDA-Public Use
  Company Number: IT-ASTRAZENECA-2017SE81039

PATIENT
  Age: 23251 Day
  Sex: Male
  Weight: 72 kg

DRUGS (2)
  1. ZOPRANOL [Concomitant]
     Active Substance: ZOFENOPRIL
     Indication: HYPERTENSION
     Dosage: 30.0MG UNKNOWN
     Route: 048
     Dates: start: 20140101
  2. BICALUTAMIDE. [Suspect]
     Active Substance: BICALUTAMIDE
     Indication: PROSTATE CANCER
     Route: 048
     Dates: start: 20160601, end: 20170125

REACTIONS (3)
  - Glycosuria [Recovered/Resolved with Sequelae]
  - Therapy non-responder [Recovered/Resolved with Sequelae]
  - Cerebral ischaemia [Recovered/Resolved with Sequelae]

NARRATIVE: CASE EVENT DATE: 20161208
